FAERS Safety Report 21479808 (Version 1)
Quarter: 2022Q4

REPORT INFORMATION
  Report Type: Spontaneous
  Country: US (occurrence: None)
  Receive Date: 20221018
  Receipt Date: 20221018
  Transmission Date: 20230112
  Serious: Yes (Hospitalization)
  Sender: FDA-Public Use
  Company Number: None

PATIENT
  Sex: Female

DRUGS (1)
  1. NUCALA [Suspect]
     Active Substance: MEPOLIZUMAB
     Indication: Asthma
     Dosage: 40MG MONTHLY SQ?
     Route: 058
     Dates: start: 202209

REACTIONS (3)
  - Asthma [None]
  - Pneumonia [None]
  - Acute respiratory distress syndrome [None]
